FAERS Safety Report 8955601 (Version 1)
Quarter: 2012Q4

REPORT INFORMATION
  Report Type: Spontaneous
  Country: US (occurrence: None)
  Receive Date: 20121111
  Receipt Date: 20121111
  Transmission Date: 20130627
  Serious: Yes (Other)
  Sender: FDA-Public Use
  Company Number: USA/USA/12/0026846

PATIENT
  Sex: Male

DRUGS (4)
  1. FLUOXETINE [Suspect]
     Indication: DEPRESSION
  2. FLUOXETINE [Suspect]
     Indication: ANXIETY
  3. FLUOXETINE [Suspect]
     Indication: ANXIETY
  4. TRAZODONE (TRAZODONE) [Concomitant]

REACTIONS (2)
  - Parkinson^s disease [None]
  - Tardive dyskinesia [None]
